FAERS Safety Report 9040835 (Version 1)
Quarter: 2013Q1

REPORT INFORMATION
  Report Type: Spontaneous
  Country: US (occurrence: None)
  Receive Date: 20130123
  Receipt Date: 20130123
  Transmission Date: 20140127
  Serious: Yes (Hospitalization)
  Sender: FDA-Public Use
  Company Number: None

PATIENT
  Age: 28 Year
  Sex: Male
  Weight: 63.6 kg

DRUGS (1)
  1. KETOROLAC TROMETHAMINE [Suspect]
     Dosage: 15 MG  ONCE  IV
     Route: 042
     Dates: start: 20121113, end: 20121113

REACTIONS (1)
  - Anaphylactic reaction [None]
